FAERS Safety Report 6836921-X (Version None)
Quarter: 2010Q3

REPORT INFORMATION
  Report Type: 
  Country: None (occurrence: None)
  Receive Date: 20100708
  Receipt Date: 20100628
  Transmission Date: 20110219
  Serious: Yes (Hospitalization, Other)
  Sender: FDA-Public Use
  Company Number: IMP_05057_2010

PATIENT
  Age: 56 Year
  Sex: Male

DRUGS (3)
  1. DIGOXIN [Suspect]
     Indication: ATRIAL FIBRILLATION
     Dosage: DF
  2. METOCLOPRAMIDE [Suspect]
     Indication: POSTOPERATIVE ILEUS
     Dosage: 20MG 1X/6 HOURS INTRAVENOUS
     Route: 042
  3. METOCLOPRAMIDE [Suspect]
     Indication: ULCER HAEMORRHAGE
     Dosage: 20MG 1X/6 HOURS INTRAVENOUS
     Route: 042

REACTIONS (7)
  - ATRIAL FIBRILLATION [None]
  - BRADYARRHYTHMIA [None]
  - CARDIAC ARREST [None]
  - GASTRIC ULCER HAEMORRHAGE [None]
  - NODAL RHYTHM [None]
  - POSTOPERATIVE ILEUS [None]
  - SINUS TACHYCARDIA [None]
